FAERS Safety Report 7801978-6 (Version None)
Quarter: 2011Q4

REPORT INFORMATION
  Report Type: 
  Country: None (occurrence: None)
  Receive Date: 20111007
  Receipt Date: 20110926
  Transmission Date: 20120403
  Serious: Yes (Hospitalization)
  Sender: FDA-Public Use
  Company Number: TH-SANOFI-AVENTIS-2010SA038801

PATIENT
  Age: 79 Year
  Sex: Male
  Weight: 45 kg

DRUGS (4)
  1. PLACEBO [Suspect]
     Indication: ACUTE CORONARY SYNDROME
     Dosage: 2.5 MG OR 5 MG
     Route: 048
     Dates: start: 20100507, end: 20100514
  2. ASPIRIN [Concomitant]
  3. PLAVIX [Suspect]
     Indication: ACUTE CORONARY SYNDROME
     Route: 048
  4. PLAVIX [Suspect]
     Indication: STENT PLACEMENT
     Route: 048

REACTIONS (2)
  - RIGHT VENTRICULAR FAILURE [None]
  - APLASTIC ANAEMIA [None]
